FAERS Safety Report 7689796-3 (Version None)
Quarter: 2011Q3

REPORT INFORMATION
  Report Type: 
  Country: None (occurrence: None)
  Receive Date: 20110818
  Receipt Date: 20110811
  Transmission Date: 20111222
  Serious: Yes (Other)
  Sender: FDA-Public Use
  Company Number: US-BRISTOL-MYERS SQUIBB COMPANY-15965395

PATIENT
  Age: 60 Year
  Sex: Male

DRUGS (5)
  1. FOLIC ACID [Concomitant]
  2. METHOTREXATE [Concomitant]
  3. DIOVAN [Concomitant]
  4. INFLIXIMAB [Suspect]
  5. ORENCIA [Suspect]
     Indication: RHEUMATOID ARTHRITIS
     Dosage: LAST INF ON 1ST AUG; FOR:INFUSION
     Route: 042
     Dates: start: 20110606

REACTIONS (3)
  - DEMYELINATION [None]
  - HYPERTENSION [None]
  - DRUG INEFFECTIVE [None]
